FAERS Safety Report 7703264-1 (Version None)
Quarter: 2011Q3

REPORT INFORMATION
  Report Type: 
  Country: None (occurrence: None)
  Receive Date: 20110823
  Receipt Date: 20110817
  Transmission Date: 20111222
  Serious: Yes (Death, Other)
  Sender: FDA-Public Use
  Company Number: BR-SANOFI-AVENTIS-2011SA053229

PATIENT

DRUGS (1)
  1. JEVTANA KIT [Suspect]

REACTIONS (1)
  - CEREBRAL HAEMORRHAGE [None]
